FAERS Safety Report 19678241 (Version 1)
Quarter: 2021Q3

REPORT INFORMATION
  Report Type: Other
  Country: US (occurrence: US)
  Receive Date: 20210809
  Receipt Date: 20210809
  Transmission Date: 20211014
  Serious: Yes (Other)
  Sender: FDA-Public Use
  Company Number: US-NOVA LABORATORIES LIMITED-2114803

PATIENT
  Age: 19 Year
  Sex: Male

DRUGS (2)
  1. METHOTREXATE. [Suspect]
     Active Substance: METHOTREXATE
  2. PURIXAN [Suspect]
     Active Substance: MERCAPTOPURINE
     Indication: ROSAI-DORFMAN SYNDROME

REACTIONS (2)
  - Treatment failure [Unknown]
  - Off label use [None]
